FAERS Safety Report 18295087 (Version 1)
Quarter: 2020Q3

REPORT INFORMATION
  Report Type: Spontaneous
  Country: US (occurrence: US)
  Receive Date: 20200922
  Receipt Date: 20200922
  Transmission Date: 20201103
  Serious: Yes (Life-Threatening, Hospitalization, Disabling)
  Sender: FDA-Public Use
  Company Number: None

PATIENT
  Age: 34 Year
  Sex: Female
  Weight: 92.25 kg

DRUGS (5)
  1. MULTIVITAMIN [Concomitant]
     Active Substance: VITAMINS
  2. VITAMIN D [Concomitant]
     Active Substance: VITAMIN D NOS
  3. MAGNESIUM [Concomitant]
     Active Substance: MAGNESIUM
  4. LEVOFLOXACIN. [Suspect]
     Active Substance: LEVOFLOXACIN
     Indication: SINUSITIS
     Dosage: ?          QUANTITY:1 TABLET(S);?
     Route: 048
  5. CBD OIL [Concomitant]
     Active Substance: CANNABIDIOL\HERBALS

REACTIONS (16)
  - Migraine [None]
  - Paraesthesia [None]
  - Nightmare [None]
  - Fatigue [None]
  - Dizziness [None]
  - Arthralgia [None]
  - Vitamin D deficiency [None]
  - Bedridden [None]
  - Magnesium deficiency [None]
  - Illness [None]
  - Mobility decreased [None]
  - Eating disorder [None]
  - Anxiety [None]
  - Neuropathy peripheral [None]
  - Vision blurred [None]
  - Exercise tolerance decreased [None]

NARRATIVE: CASE EVENT DATE: 20180130
